FAERS Safety Report 9999485 (Version 1)
Quarter: 2014Q1

REPORT INFORMATION
  Report Type: Spontaneous
  Country: US (occurrence: None)
  Receive Date: 20140311
  Receipt Date: 20140311
  Transmission Date: 20141002
  Serious: Yes (Life-Threatening)
  Sender: FDA-Public Use
  Company Number: None

PATIENT
  Age: 37 Year
  Sex: Male
  Weight: 119.1 kg

DRUGS (15)
  1. PEG ASPARAGINASE [Suspect]
     Indication: B PRECURSOR TYPE ACUTE LEUKAEMIA
     Route: 042
     Dates: start: 20140306
  2. DIPHENHYDRAMINE [Concomitant]
  3. LEVOFLOXACIN [Concomitant]
  4. RANITIDINE [Concomitant]
  5. ACETAMINOPHEN [Concomitant]
  6. ACYCLOVIR [Concomitant]
  7. ALBUTEROL SULFATE HFA [Concomitant]
  8. BUDESONIDE-FORMODEROL HFA [Concomitant]
  9. DIPHENHYDRAMINE [Concomitant]
  10. DOCUSATE SODIUM [Concomitant]
  11. FEXOFENADINE [Concomitant]
  12. OMEPRAZOLE [Concomitant]
  13. PENTAMIDINE [Concomitant]
  14. PROCHLORPERAZINE MALEATE [Concomitant]
  15. SODIUM CHLORIDE [Concomitant]

REACTIONS (11)
  - Flushing [None]
  - Dizziness [None]
  - Pruritus [None]
  - Rash [None]
  - Infusion related reaction [None]
  - Blood pressure diastolic decreased [None]
  - Dyskinesia [None]
  - Eye movement disorder [None]
  - Urinary incontinence [None]
  - Faecal incontinence [None]
  - Pulse absent [None]
